FAERS Safety Report 7082439-1 (Version None)
Quarter: 2010Q4

REPORT INFORMATION
  Report Type: 
  Country: None (occurrence: None)
  Receive Date: 20101102
  Receipt Date: 20101102
  Transmission Date: 20110411
  Serious: No
  Sender: FDA-Public Use
  Company Number: None

PATIENT
  Age: 83 Year
  Sex: Female
  Weight: 45.3597 kg

DRUGS (2)
  1. VENOFER [Suspect]
     Indication: ANAEMIA
     Dosage: 400MG WEEKLY IV
     Route: 042
     Dates: start: 20101028
  2. SODIUM CHLORIDE INJ [Suspect]
     Dosage: 250ML WEEKLY IV
     Route: 042

REACTIONS (3)
  - CONTUSION [None]
  - INFUSION SITE EXTRAVASATION [None]
  - PAIN [None]
